FAERS Safety Report 5728516-6 (Version None)
Quarter: 2008Q2

REPORT INFORMATION
  Report Type: 
  Country: None (occurrence: None)
  Receive Date: 20080506
  Receipt Date: 20080429
  Transmission Date: 20081010
  Serious: Yes (Hospitalization)
  Sender: FDA-Public Use
  Company Number: GB-AVENTIS-200812871GDDC

PATIENT
  Age: 68 Year
  Sex: Female
  Weight: 101 kg

DRUGS (7)
  1. LANTUS [Suspect]
     Route: 058
     Dates: start: 20070524
  2. APIDRA [Suspect]
     Route: 058
     Dates: start: 20070524
  3. GLYBURIDE [Suspect]
     Route: 048
     Dates: start: 20070501
  4. ACTOS [Suspect]
     Route: 048
     Dates: start: 20070605
  5. LOTREL                             /01289101/ [Concomitant]
     Indication: HYPERTENSION
     Dosage: DOSE: 10/40
     Route: 048
     Dates: start: 19870101
  6. METOPROLOL TARTRATE [Concomitant]
     Indication: HYPERTENSION
     Route: 048
     Dates: start: 19870101
  7. ASPIRIN [Concomitant]
     Route: 048
     Dates: start: 19990101

REACTIONS (2)
  - BRONCHITIS [None]
  - HYPOGLYCAEMIA [None]
